FAERS Safety Report 9544036 (Version 2)
Quarter: 2013Q3

REPORT INFORMATION
  Report Type: Spontaneous
  Country: US (occurrence: US)
  Receive Date: 20130923
  Receipt Date: 20130930
  Transmission Date: 20140515
  Serious: No
  Sender: FDA-Public Use
  Company Number: US-TEVA-433816USA

PATIENT
  Sex: Female
  Weight: 65.83 kg

DRUGS (2)
  1. PARAGARD 380A [Suspect]
     Indication: CONTRACEPTION
     Route: 015
     Dates: start: 201302, end: 201302
  2. PARAGARD 380A [Suspect]
     Route: 015
     Dates: start: 20130528, end: 20130528

REACTIONS (3)
  - Pain [Recovered/Resolved]
  - Complication of device insertion [Recovered/Resolved]
  - Uterine spasm [Recovered/Resolved]
